FAERS Safety Report 13517203 (Version 1)
Quarter: 2017Q2

REPORT INFORMATION
  Report Type: Spontaneous
  Country: US (occurrence: US)
  Receive Date: 20170505
  Receipt Date: 20170505
  Transmission Date: 20170830
  Serious: Yes (Hospitalization)
  Sender: FDA-Public Use
  Company Number: None

PATIENT
  Age: 66 Year
  Sex: Male
  Weight: 90.5 kg

DRUGS (8)
  1. PERPHENAZINE. [Suspect]
     Active Substance: PERPHENAZINE
     Indication: BIPOLAR DISORDER
     Dosage: DATES OF USE CHRONIC
     Route: 048
  2. AUGMENTIN [Concomitant]
     Active Substance: AMOXICILLIN\CLAVULANATE POTASSIUM
  3. HUMULIN NOS [Concomitant]
     Active Substance: INSULIN HUMAN
  4. LASIX [Concomitant]
     Active Substance: FUROSEMIDE
  5. SYNTHROID [Concomitant]
     Active Substance: LEVOTHYROXINE SODIUM
  6. FOLVITE [Concomitant]
     Active Substance: FOLIC ACID
  7. CHRONULAC [Concomitant]
     Active Substance: LACTULOSE
  8. PERPHENAZINE. [Suspect]
     Active Substance: PERPHENAZINE
     Indication: SCHIZOPHRENIA
     Dosage: DATES OF USE CHRONIC
     Route: 048

REACTIONS (6)
  - Unresponsive to stimuli [None]
  - Bradycardia [None]
  - Therapy cessation [None]
  - Apnoea [None]
  - Hypothermia [None]
  - Hypotension [None]

NARRATIVE: CASE EVENT DATE: 20170107
